FAERS Safety Report 5846008-0 (Version None)
Quarter: 2008Q3

REPORT INFORMATION
  Report Type: 
  Country: None (occurrence: None)
  Receive Date: 20080813
  Receipt Date: 20080805
  Transmission Date: 20090109
  Serious: Yes (Other)
  Sender: FDA-Public Use
  Company Number: 2008S1000224

PATIENT
  Age: 35 Year
  Sex: Female
  Weight: 77.1115 kg

DRUGS (3)
  1. SORIATANE [Suspect]
     Indication: PSORIASIS
     Dosage: 25 MG; HS; PO, 25 MG; HS; PO, 25 MG; HS; PO
     Route: 048
     Dates: start: 20050101, end: 20060501
  2. SORIATANE [Suspect]
     Indication: PSORIASIS
     Dosage: 25 MG; HS; PO, 25 MG; HS; PO, 25 MG; HS; PO
     Route: 048
     Dates: start: 20080804, end: 20080805
  3. SORIATANE [Suspect]
     Indication: PSORIASIS
     Dosage: 25 MG; HS; PO, 25 MG; HS; PO, 25 MG; HS; PO
     Route: 048
     Dates: start: 20070901

REACTIONS (4)
  - CAESAREAN SECTION [None]
  - DRUG EXPOSURE DURING PREGNANCY [None]
  - HYPERTENSION [None]
  - PREGNANCY ON CONTRACEPTIVE [None]
